FAERS Safety Report 9651525 (Version 1)
Quarter: 2013Q4

REPORT INFORMATION
  Report Type: Report from Study
  Country: CA (occurrence: CA)
  Receive Date: 20131029
  Receipt Date: 20131029
  Transmission Date: 20140711
  Serious: Yes (Other)
  Sender: FDA-Public Use
  Company Number: CA-JNJFOC-20131013512

PATIENT
  Age: 62 Year
  Sex: Female
  Weight: 59 kg

DRUGS (3)
  1. REMICADE [Suspect]
     Indication: RHEUMATOID ARTHRITIS
     Route: 042
     Dates: start: 20130524
  2. LIPITOR [Concomitant]
     Route: 065
  3. ATIVAN [Concomitant]
     Route: 065

REACTIONS (2)
  - Nephrolithiasis [Unknown]
  - Herpes zoster [Unknown]
